FAERS Safety Report 4765433-2 (Version None)
Quarter: 2005Q3

REPORT INFORMATION
  Report Type: 
  Country: None (occurrence: None)
  Receive Date: 20050912
  Receipt Date: 20040119
  Transmission Date: 20060218
  Serious: Yes (Death, Life-Threatening, Hospitalization, Disabling)
  Sender: FDA-Public Use
  Company Number: JP-BOEHRINGER INGELHEIM PHARMACEUTICALS, INC.-2004-BP-01825YA

PATIENT
  Sex: Male

DRUGS (3)
  1. HARNAL [Suspect]
     Indication: BENIGN PROSTATIC HYPERPLASIA
     Route: 048
     Dates: start: 20020101, end: 20040105
  2. URSODEOXYCHOLIC ACID [Concomitant]
     Indication: HEPATIC CIRRHOSIS
     Route: 048
     Dates: start: 20020101, end: 20040101
  3. LACTULOSE [Concomitant]
     Indication: HEPATIC CIRRHOSIS
     Route: 048
     Dates: start: 20020101

REACTIONS (4)
  - CIRRHOSIS ALCOHOLIC [None]
  - JAUNDICE [None]
  - LIVER DISORDER [None]
  - PYREXIA [None]
